FAERS Safety Report 6200168-0 (Version None)
Quarter: 2009Q2

REPORT INFORMATION
  Report Type: 
  Country: None (occurrence: None)
  Receive Date: 20090522
  Receipt Date: 20090513
  Transmission Date: 20091009
  Serious: Yes (Other)
  Sender: FDA-Public Use
  Company Number: HR-JNJFOC-20090504864

PATIENT
  Sex: Female

DRUGS (2)
  1. ZALDIAR [Suspect]
     Indication: POLYARTHRITIS
     Route: 065
  2. EUTHYROX [Concomitant]
     Route: 065

REACTIONS (4)
  - ASTHENIA [None]
  - HEADACHE [None]
  - MYALGIA [None]
  - VOMITING [None]
